FAERS Safety Report 21291151 (Version 1)
Quarter: 2022Q3

REPORT INFORMATION
  Report Type: Report from Study
  Country: US (occurrence: US)
  Receive Date: 20220903
  Receipt Date: 20220903
  Transmission Date: 20221027
  Serious: Yes (Hospitalization)
  Sender: FDA-Public Use
  Company Number: US-Accord-276031

PATIENT
  Sex: Male
  Weight: 140.90 kg

DRUGS (10)
  1. CLOZAPINE [Suspect]
     Active Substance: CLOZAPINE
     Indication: Schizophrenia
     Dosage: 100 MG DAILY AND 250 MG BEDTIME
  2. METFORMIN [Concomitant]
     Active Substance: METFORMIN HYDROCHLORIDE
  3. CLOMIPRAMINE [Concomitant]
     Active Substance: CLOMIPRAMINE
  4. PROPRANOLOL [Concomitant]
     Active Substance: PROPRANOLOL HYDROCHLORIDE
  5. DOCUSATE SODIUM [Concomitant]
     Active Substance: DOCUSATE SODIUM
  6. FLUPHENAZINE [Concomitant]
     Active Substance: FLUPHENAZINE
  7. NALTREXONE [Concomitant]
     Active Substance: NALTREXONE
  8. VITAMIN D3 [Concomitant]
     Active Substance: CHOLECALCIFEROL
  9. DIVALPROEX SODIUM [Concomitant]
     Active Substance: DIVALPROEX SODIUM
  10. ALBENDAZOLE [Concomitant]
     Active Substance: ALBENDAZOLE

REACTIONS (1)
  - Suicidal ideation [Unknown]
